FAERS Safety Report 7936136-8 (Version None)
Quarter: 2011Q4

REPORT INFORMATION
  Report Type: 
  Country: None (occurrence: None)
  Receive Date: 20111123
  Receipt Date: 20111117
  Transmission Date: 20120403
  Serious: Yes (Other)
  Sender: FDA-Public Use
  Company Number: US-BAYER-2011-104509

PATIENT
  Age: 66 Year
  Sex: Female

DRUGS (6)
  1. SORAFENIB (RAF KINASE INHIBITOR) [Suspect]
     Indication: THYROID CANCER
     Dosage: 400 MG, BID
     Dates: start: 20111020
  2. COUMADIN [Concomitant]
  3. LORTAB [Concomitant]
  4. SKELAXIN [Concomitant]
  5. PERCOCET [Concomitant]
     Indication: PAIN
  6. TYLENOL W/ CODEINE NO. 3 [Concomitant]
     Dosage: UNK UNK, PRN

REACTIONS (21)
  - CHEILITIS [None]
  - STOMATITIS [None]
  - BUNION [None]
  - NECK PAIN [None]
  - DECREASED APPETITE [None]
  - PAIN IN EXTREMITY [None]
  - ERYTHEMA [None]
  - FATIGUE [None]
  - NAUSEA [None]
  - MYALGIA [None]
  - INSOMNIA [None]
  - OXYGEN SATURATION DECREASED [None]
  - CONSTIPATION [None]
  - MUSCLE SPASMS [None]
  - HEADACHE [None]
  - RASH GENERALISED [None]
  - DYSPNOEA [None]
  - ANXIETY [None]
  - PRURITUS [None]
  - PROTHROMBIN TIME PROLONGED [None]
  - ARTHRALGIA [None]
